FAERS Safety Report 7044863-2 (Version None)
Quarter: 2010Q3

REPORT INFORMATION
  Report Type: 
  Country: None (occurrence: None)
  Receive Date: 20100929
  Receipt Date: 20100609
  Transmission Date: 20110219
  Serious: No
  Sender: FDA-Public Use
  Company Number: US-WYE-H15827410

PATIENT
  Age: 61 Year
  Sex: Male
  Weight: 79 kg

DRUGS (2)
  1. PRISTIQ [Suspect]
     Indication: DEPRESSION
     Dosage: (RESTARTED AT UNKNOWN DOSE) (50 MG 1X PER 1 DAY)
     Dates: start: 20100101, end: 20100101
  2. PRISTIQ [Suspect]
     Indication: DEPRESSION
     Dosage: (RESTARTED AT UNKNOWN DOSE) (50 MG 1X PER 1 DAY)
     Dates: start: 20100101

REACTIONS (1)
  - MEDICATION RESIDUE [None]
